FAERS Safety Report 5927752-3 (Version None)
Quarter: 2008Q4

REPORT INFORMATION
  Report Type: 
  Country: None (occurrence: None)
  Receive Date: 20081020
  Receipt Date: 20081015
  Transmission Date: 20090506
  Serious: Yes (Other)
  Sender: FDA-Public Use
  Company Number: 1000000653

PATIENT
  Age: 46 Year
  Sex: Female
  Weight: 83.4619 kg

DRUGS (3)
  1. LEXAPRO [Suspect]
     Dosage: 5 MG , 10 MG ,(5 MG, 10MG, 1 IN 1D), ORAL
     Route: 048
     Dates: start: 20070801, end: 20080101
  2. LEXAPRO [Suspect]
     Dosage: 5 MG , 10 MG ,(5 MG, 10MG, 1 IN 1D), ORAL
     Route: 048
     Dates: start: 20080101, end: 20080701
  3. HALDOL [Concomitant]

REACTIONS (1)
  - IDIOPATHIC THROMBOCYTOPENIC PURPURA [None]
